FAERS Safety Report 5037235-3 (Version None)
Quarter: 2006Q2

REPORT INFORMATION
  Report Type: 
  Country: None (occurrence: None)
  Receive Date: 20060628
  Receipt Date: 20060623
  Transmission Date: 20061013
  Serious: Yes (Hospitalization)
  Sender: FDA-Public Use
  Company Number: FR-MERCK-0606FRA00066

PATIENT
  Age: 29 Year
  Sex: Female

DRUGS (1)
  1. FOSAMAX [Suspect]
     Indication: COMPLEX REGIONAL PAIN SYNDROME
     Route: 048
     Dates: start: 20040224, end: 20040228

REACTIONS (5)
  - DRUG EXPOSURE DURING PREGNANCY [None]
  - INTENTIONAL DRUG MISUSE [None]
  - PREGNANCY [None]
  - PREMATURE LABOUR [None]
  - THREATENED LABOUR [None]
